FAERS Safety Report 7521172-6 (Version None)
Quarter: 2011Q2

REPORT INFORMATION
  Report Type: 
  Country: None (occurrence: None)
  Receive Date: 20110524
  Receipt Date: 20110512
  Transmission Date: 20111010
  Serious: Yes (Death)
  Sender: FDA-Public Use
  Company Number: JPI-P-014826

PATIENT
  Age: 37 Year
  Sex: Female

DRUGS (2)
  1. XYREM [Suspect]
     Indication: PRODUCT USED FOR UNKNOWN INDICATION
     Dosage: 6 GM (3 GM,2 IN 1 D),ORAL, 9 GM (4.5 GM,2 IN 1 D), ORAL
     Route: 048
     Dates: start: 20060512, end: 20060501
  2. XYREM [Suspect]
     Indication: PRODUCT USED FOR UNKNOWN INDICATION
     Dosage: 6 GM (3 GM,2 IN 1 D),ORAL, 9 GM (4.5 GM,2 IN 1 D), ORAL
     Route: 048
     Dates: start: 20060414, end: 20060501

REACTIONS (1)
  - DEATH [None]
